FAERS Safety Report 4660208-7 (Version None)
Quarter: 2005Q2

REPORT INFORMATION
  Report Type: 
  Country: None (occurrence: None)
  Receive Date: 20050512
  Receipt Date: 20050429
  Transmission Date: 20051028
  Serious: Yes (Hospitalization, Other)
  Sender: FDA-Public Use
  Company Number: GB-JNJFOC-20050500344

PATIENT
  Sex: Female
  Weight: 66 kg

DRUGS (10)
  1. REMICADE [Suspect]
     Indication: RHEUMATOID ARTHRITIS
     Route: 042
  2. METHOTREXATE [Concomitant]
  3. LANSOPRAZOLE [Concomitant]
  4. ATENOLOL [Concomitant]
  5. RAMIPRIL [Concomitant]
  6. ASPIRIN [Concomitant]
  7. VOLTAROL [Concomitant]
  8. NIFEDIPINE [Concomitant]
  9. FOLIC ACID [Concomitant]
  10. FERROUS SULFATE TAB [Concomitant]

REACTIONS (2)
  - ARTHRALGIA [None]
  - JOINT EFFUSION [None]
